FAERS Safety Report 7703167-2 (Version None)
Quarter: 2011Q3

REPORT INFORMATION
  Report Type: 
  Country: None (occurrence: None)
  Receive Date: 20110817
  Receipt Date: 20110810
  Transmission Date: 20111222
  Serious: Yes (Death)
  Sender: FDA-Public Use
  Company Number: KV201100157

PATIENT

DRUGS (1)
  1. MAKENA [Suspect]
     Indication: MATERNAL EXPOSURE DURING PREGNANCY
     Dates: start: 20110422, end: 20110526

REACTIONS (5)
  - TWIN PREGNANCY [None]
  - MATERNAL DRUGS AFFECTING FOETUS [None]
  - CONGENITAL ANOMALY [None]
  - STILLBIRTH [None]
  - PREMATURE BABY [None]
